FAERS Safety Report 18951802 (Version 2)
Quarter: 2021Q1

REPORT INFORMATION
  Report Type: Report from Study
  Country: None (occurrence: US)
  Receive Date: 20210301
  Receipt Date: 20210303
  Transmission Date: 20210420
  Serious: Yes (Hospitalization)
  Sender: FDA-Public Use
  Company Number: US-ABBVIE-21K-163-3789153-00

PATIENT
  Age: 58 Year
  Sex: Male

DRUGS (1)
  1. VENCLEXTA [Suspect]
     Active Substance: VENETOCLAX
     Indication: MANTLE CELL LYMPHOMA
     Dosage: STARTER PACK, TAKE TWO 10MG TABLETS FOR SEVEN DAYS, THEN TITRATE AS PER PACKAGE DIRECTIONS
     Route: 048

REACTIONS (9)
  - Dysstasia [Unknown]
  - Insomnia [Recovering/Resolving]
  - Dehydration [Recovering/Resolving]
  - Blood lactate dehydrogenase increased [Unknown]
  - Dry mouth [Recovering/Resolving]
  - Mobility decreased [Unknown]
  - Anxiety [Unknown]
  - Pain [Unknown]
  - Splenomegaly [Unknown]

NARRATIVE: CASE EVENT DATE: 202102
